FAERS Safety Report 24882679 (Version 1)
Quarter: 2025Q1

REPORT INFORMATION
  Report Type: Report from Study
  Country: IN (occurrence: IN)
  Receive Date: 20250124
  Receipt Date: 20250124
  Transmission Date: 20250409
  Serious: Yes (Hospitalization)
  Sender: ROCHE
  Company Number: IN-ROCHE-10000132821

PATIENT
  Age: 67 Year
  Sex: Male

DRUGS (1)
  1. TECENTRIQ [Suspect]
     Active Substance: ATEZOLIZUMAB
     Indication: Hepatocellular carcinoma
     Route: 042
     Dates: start: 20240909

REACTIONS (5)
  - Pyrexia [Unknown]
  - Fatigue [Recovered/Resolved]
  - Decreased appetite [Unknown]
  - Eating disorder [Unknown]
  - Seizure [Unknown]

NARRATIVE: CASE EVENT DATE: 20240930
